FAERS Safety Report 9461897 (Version 1)
Quarter: 2013Q3

REPORT INFORMATION
  Report Type: Spontaneous
  Country: US (occurrence: US)
  Receive Date: 20130816
  Receipt Date: 20130816
  Transmission Date: 20140515
  Serious: Yes (Hospitalization)
  Sender: FDA-Public Use
  Company Number: US-UCBSA-090359

PATIENT
  Sex: Male
  Weight: 68.03 kg

DRUGS (9)
  1. VIMPAT [Suspect]
     Indication: CONVULSION
     Dosage: DRUG STRENGTH:50MG
  2. KEPPRA XR [Suspect]
     Indication: CONVULSION
     Dosage: DRUG STRENGTH -:500MG. DOSE: 2000MG
  3. PLAVIX [Concomitant]
     Indication: BLOOD PRESSURE
     Dosage: 75
  4. PLAVIX [Concomitant]
     Indication: PLAGUE
     Dosage: 75
  5. LISINOPRIL [Concomitant]
     Indication: BLOOD PRESSURE
     Dosage: 10
  6. HYDROCHLOROTHIAZIDE [Concomitant]
     Indication: BLOOD PRESSURE
     Dosage: 10
  7. OXYBUTYNIN [Concomitant]
     Indication: URINARY INCONTINENCE
     Dosage: 5
  8. ALLERGEN [Concomitant]
     Indication: CHOKING
     Dosage: 180
  9. ALLERGEN [Concomitant]
     Indication: PARALYSIS
     Dosage: 180

REACTIONS (5)
  - Cerebrovascular accident [Recovered/Resolved]
  - Convulsion [Not Recovered/Not Resolved]
  - Drug dose omission [Not Recovered/Not Resolved]
  - Inappropriate schedule of drug administration [Unknown]
  - Overdose [Unknown]
